FAERS Safety Report 9198528 (Version 2)
Quarter: 2014Q2

REPORT INFORMATION
  Report Type: Spontaneous
  Country: MX (occurrence: MX)
  Receive Date: 20130329
  Receipt Date: 20140607
  Transmission Date: 20141212
  Serious: Yes (Death)
  Sender: FDA-Public Use
  Company Number: PHHY2013MX030781

PATIENT
  Age: 88 Year
  Sex: Female

DRUGS (6)
  1. EXELON PATCH [Suspect]
     Indication: DEMENTIA ALZHEIMER^S TYPE
     Dosage: 4.6 MG, DAILY
     Route: 062
     Dates: start: 200908
  2. EXELON PATCH [Suspect]
     Dosage: 9.5 MG, DAILY
     Route: 062
  3. CLONAZEPAM [Concomitant]
     Indication: DEMENTIA ALZHEIMER^S TYPE
     Dosage: 1.5 DF, UNK (1 AT NIGHT AND 0.5 IN THE MORNING)
  4. EBIXA [Concomitant]
     Indication: DEMENTIA ALZHEIMER^S TYPE
     Dosage: UNK UKN, UNK
  5. RISPERIDONE [Concomitant]
     Indication: DEMENTIA ALZHEIMER^S TYPE
     Dosage: UNK UKN, UNK
  6. VITAMINS NOS [Concomitant]
     Indication: DEMENTIA ALZHEIMER^S TYPE
     Dosage: UNK UKN, UNK

REACTIONS (3)
  - Respiratory failure [Fatal]
  - Cough [Not Recovered/Not Resolved]
  - Productive cough [Not Recovered/Not Resolved]
